FAERS Safety Report 17202888 (Version 1)
Quarter: 2019Q4

REPORT INFORMATION
  Report Type: Spontaneous
  Country: PL (occurrence: PL)
  Receive Date: 20191226
  Receipt Date: 20191226
  Transmission Date: 20200122
  Serious: Yes (Other)
  Sender: FDA-Public Use
  Company Number: PL-ASTRAZENECA-2019SF86080

PATIENT
  Sex: Male

DRUGS (1)
  1. BRILIQUE [Suspect]
     Active Substance: TICAGRELOR
     Indication: ACUTE CORONARY SYNDROME
     Dosage: 180 MG OF LOADING DOSE AND THEN 2X DAILY 90MG
     Route: 048
     Dates: start: 20191212, end: 20191216

REACTIONS (2)
  - Nodal rhythm [Recovered/Resolved]
  - Accelerated idioventricular rhythm [Recovered/Resolved]
